FAERS Safety Report 9294526 (Version 3)
Quarter: 2014Q1

REPORT INFORMATION
  Report Type: Report from Study
  Country: CA (occurrence: CA)
  Receive Date: 20130517
  Receipt Date: 20140321
  Transmission Date: 20141002
  Serious: Yes (Other)
  Sender: FDA-Public Use
  Company Number: CA-ROCHE-1224497

PATIENT
  Sex: Female
  Weight: 125 kg

DRUGS (12)
  1. RITUXAN [Suspect]
     Indication: LUPUS NEPHRITIS
     Dosage: LAST INFUSION: 28/MAR/2011, 02/JUL/2013,?FREQUENCY : DAY 1 AND 15.
     Route: 042
     Dates: start: 20090702
  2. RITUXAN [Suspect]
     Indication: OFF LABEL USE
  3. BENLYSTA [Suspect]
     Indication: LUPUS NEPHRITIS
     Route: 065
     Dates: start: 2012
  4. PREDNISONE [Concomitant]
  5. ALPRAZOLAM [Concomitant]
  6. DILAUDID [Concomitant]
     Route: 065
  7. ATASOL (PARACETAMOL) [Concomitant]
     Route: 065
  8. CELEXA (CANADA) [Concomitant]
  9. SERTRALINE [Concomitant]
  10. DIPHENHYDRAMINE HCL [Concomitant]
     Indication: PREMEDICATION
     Route: 048
     Dates: start: 20090702
  11. ACETAMINOPHEN [Concomitant]
     Indication: PREMEDICATION
     Route: 048
     Dates: start: 20090702
  12. METHYLPREDNISOLONE [Concomitant]
     Indication: PREMEDICATION
     Route: 042
     Dates: start: 20090702

REACTIONS (8)
  - Bone disorder [Unknown]
  - Gastric bypass [Unknown]
  - Weight increased [Not Recovered/Not Resolved]
  - Pain [Not Recovered/Not Resolved]
  - Fatigue [Not Recovered/Not Resolved]
  - Headache [Not Recovered/Not Resolved]
  - Infection [Unknown]
  - Off label use [Unknown]
